FAERS Safety Report 6922713-X (Version None)
Quarter: 2010Q3

REPORT INFORMATION
  Report Type: 
  Country: None (occurrence: None)
  Receive Date: 20100813
  Receipt Date: 20100805
  Transmission Date: 20110219
  Serious: Yes (Other)
  Sender: FDA-Public Use
  Company Number: NL-JNJFOC-20100801419

PATIENT
  Sex: Male

DRUGS (4)
  1. TRISPORAL [Suspect]
     Indication: PRODUCT USED FOR UNKNOWN INDICATION
     Route: 048
  2. MICARDIS HCT [Concomitant]
     Route: 065
  3. PERINDOPRIL [Concomitant]
     Route: 065
  4. METFORMIN HCL [Concomitant]
     Route: 065

REACTIONS (1)
  - TENDON RUPTURE [None]
